FAERS Safety Report 8734159 (Version 4)
Quarter: 2013Q3

REPORT INFORMATION
  Report Type: Spontaneous
  Country: US (occurrence: US)
  Receive Date: 20120821
  Receipt Date: 20130819
  Transmission Date: 20140515
  Serious: Yes (Other)
  Sender: FDA-Public Use
  Company Number: US-PFIZER INC-2012199615

PATIENT
  Age: 49 Year
  Sex: Female
  Weight: 67.57 kg

DRUGS (5)
  1. LYRICA [Suspect]
     Indication: FIBROMYALGIA
     Dosage: UNK
     Dates: start: 2008
  2. LYRICA [Suspect]
     Dosage: 75 MG, 2X/DAY
     Dates: start: 2010
  3. NEURONTIN [Suspect]
     Dosage: UNK
     Dates: start: 2008
  4. SAVELLA [Concomitant]
     Indication: FIBROMYALGIA
     Dosage: 200 MG, 1X/DAY
  5. TOPAMAX [Concomitant]
     Dosage: 100 MG, 1X/DAY

REACTIONS (8)
  - Road traffic accident [Unknown]
  - Back disorder [Unknown]
  - Neck injury [Unknown]
  - Post-traumatic stress disorder [Unknown]
  - Amnesia [Unknown]
  - Confusional state [Unknown]
  - Feeling abnormal [Unknown]
  - Panic attack [Unknown]
